FAERS Safety Report 16112829 (Version 1)
Quarter: 2019Q1

REPORT INFORMATION
  Report Type: Report from Study
  Country: US (occurrence: US)
  Receive Date: 20190325
  Receipt Date: 20190325
  Transmission Date: 20190418
  Serious: Yes (Death, Other)
  Sender: FDA-Public Use
  Company Number: US-JNJFOC-20190316537

PATIENT
  Age: 83 Year
  Sex: Male

DRUGS (1)
  1. IMBRUVICA [Suspect]
     Active Substance: IBRUTINIB
     Indication: CHRONIC LYMPHOCYTIC LEUKAEMIA
     Route: 048
     Dates: start: 20190219

REACTIONS (8)
  - Pneumonia aspiration [Fatal]
  - Clostridium difficile colitis [Fatal]
  - Off label use [Unknown]
  - Pancytopenia [Fatal]
  - Disease progression [Fatal]
  - Disseminated intravascular coagulation [Fatal]
  - Protein deficiency [Fatal]
  - Incorrect dose administered [Unknown]

NARRATIVE: CASE EVENT DATE: 20190219
